FAERS Safety Report 18402507 (Version 3)
Quarter: 2021Q1

REPORT INFORMATION
  Report Type: Spontaneous
  Country: US (occurrence: US)
  Receive Date: 20201020
  Receipt Date: 20210127
  Transmission Date: 20210419
  Serious: No
  Sender: FDA-Public Use
  Company Number: US-VIFOR (INTERNATIONAL) INC.-VIT-2020-10315

PATIENT
  Age: 56 Year
  Sex: Female
  Weight: 69.1 kg

DRUGS (9)
  1. MIRCERA [Suspect]
     Active Substance: METHOXY POLYETHYLENE GLYCOL-EPOETIN BETA
     Indication: ANAEMIA
  2. MIRCERA [Suspect]
     Active Substance: METHOXY POLYETHYLENE GLYCOL-EPOETIN BETA
     Route: 042
     Dates: start: 20200820
  3. DIPHENHYDRAMINE. [Concomitant]
     Active Substance: DIPHENHYDRAMINE
     Indication: ANXIETY
     Route: 042
     Dates: start: 20190312
  4. ZOFRAN [Concomitant]
     Active Substance: ONDANSETRON HYDROCHLORIDE
     Indication: NAUSEA
  5. HEPARIN [Concomitant]
     Active Substance: HEPARIN SODIUM
     Indication: PROPHYLAXIS
     Dosage: 500 UNITS/HOUR
     Route: 042
     Dates: start: 20190112
  6. ZOFRAN [Concomitant]
     Active Substance: ONDANSETRON HYDROCHLORIDE
     Indication: HAEMODIALYSIS
  7. HEPARIN [Concomitant]
     Active Substance: HEPARIN SODIUM
     Route: 042
     Dates: start: 20190112
  8. MIRCERA [Suspect]
     Active Substance: METHOXY POLYETHYLENE GLYCOL-EPOETIN BETA
     Dosage: DOSE NUMBER: 39
     Route: 042
     Dates: start: 20200915, end: 20200915
  9. CALCITRIOL. [Concomitant]
     Active Substance: CALCITRIOL
     Indication: PHOSPHORUS METABOLISM DISORDER
     Route: 048
     Dates: start: 20200704

REACTIONS (4)
  - Drug hypersensitivity [Recovered/Resolved]
  - Vomiting [Recovered/Resolved]
  - Nausea [Recovered/Resolved]
  - Malaise [Recovered/Resolved]

NARRATIVE: CASE EVENT DATE: 20200915
